FAERS Safety Report 7617056-5 (Version None)
Quarter: 2011Q3

REPORT INFORMATION
  Report Type: 
  Country: None (occurrence: None)
  Receive Date: 20110718
  Receipt Date: 20110126
  Transmission Date: 20111222
  Serious: Yes (Hospitalization, Other)
  Sender: FDA-Public Use
  Company Number: US-BAYER-201042009NA

PATIENT
  Age: 53 Year
  Sex: Male
  Weight: 79 kg

DRUGS (15)
  1. TRASYLOL [Suspect]
     Indication: AORTIC SURGERY
     Dosage: 200 ML FOLLOWED BY 50 ML / HOUR DRIP
     Route: 042
     Dates: start: 20041130, end: 20041201
  2. TRASYLOL [Suspect]
     Indication: CORONARY ARTERY BYPASS
  3. VERSED [Concomitant]
     Dosage: UNK
     Route: 042
     Dates: start: 20041130
  4. EPINEPHRINE [Concomitant]
     Dosage: 0.1MCG/KG/MIN
     Route: 042
     Dates: start: 20041130
  5. METOPROLOL TARTRATE [Concomitant]
     Dosage: UNK
     Route: 042
     Dates: start: 20041130
  6. SODIUM NITROPRUSSIDE [Concomitant]
     Dosage: UNK
     Route: 042
     Dates: start: 20041130
  7. ANCEF [Concomitant]
     Dosage: UNK
     Route: 042
     Dates: start: 20041130
  8. LASIX [Concomitant]
     Dosage: UNK
     Route: 042
     Dates: start: 20041130
  9. PHENYLEPHRIN [Concomitant]
     Dosage: UNK
     Route: 042
     Dates: start: 20041130
  10. HEPARIN [Concomitant]
     Dosage: UNK
     Route: 042
     Dates: start: 20041130
  11. AMIODARONE HCL [Concomitant]
     Dosage: UNK
     Route: 042
     Dates: start: 20041130
  12. INSULIN HUMAN [Concomitant]
     Dosage: UNK
     Route: 042
     Dates: start: 20041130
  13. ROCURONIUM BROMIDE [Concomitant]
     Dosage: UNK
     Route: 042
     Dates: start: 20041130
  14. DESMOPRESSIN [Concomitant]
     Dosage: 25MCG
     Route: 042
     Dates: start: 20041130
  15. PROTAMINE SULFATE [Concomitant]
     Dosage: UNK
     Route: 042
     Dates: start: 20041130

REACTIONS (13)
  - DEPRESSION [None]
  - FEAR OF DEATH [None]
  - ANXIETY [None]
  - NERVOUSNESS [None]
  - MULTI-ORGAN FAILURE [None]
  - UNEVALUABLE EVENT [None]
  - INJURY [None]
  - EMOTIONAL DISTRESS [None]
  - RENAL FAILURE [None]
  - PAIN [None]
  - RENAL INJURY [None]
  - FEAR [None]
  - PSYCHIATRIC SYMPTOM [None]
